FAERS Safety Report 24461389 (Version 1)
Quarter: 2024Q4

REPORT INFORMATION
  Report Type: Report from Study
  Country: NO (occurrence: NO)
  Receive Date: 20241018
  Receipt Date: 20241018
  Transmission Date: 20250115
  Serious: No
  Sender: ROCHE
  Company Number: NO-ROCHE-3564215

PATIENT

DRUGS (9)
  1. RITUXIMAB [Interacting]
     Active Substance: RITUXIMAB
     Indication: Cardiac sarcoidosis
     Dosage: DRUG ADMINISTERED EITHER AS 1000 MG INTRAVENOUSLY *1 OR * 2 DOSES, SEPARATED BY TWO WEEKS, OR AS A D
     Route: 042
  2. MYCOPHENOLATE MOFETIL [Suspect]
     Active Substance: MYCOPHENOLATE MOFETIL
     Indication: Cardiac sarcoidosis
     Route: 065
  3. PREDNISOLONE [Suspect]
     Active Substance: PREDNISOLONE
     Indication: Cardiac sarcoidosis
     Route: 065
  4. AZATHIOPRINE [Suspect]
     Active Substance: AZATHIOPRINE
     Indication: Cardiac sarcoidosis
     Route: 065
  5. METHOTREXATE [Suspect]
     Active Substance: METHOTREXATE
     Indication: Cardiac sarcoidosis
     Route: 065
  6. INFLIXIMAB [Suspect]
     Active Substance: INFLIXIMAB
     Indication: Cardiac sarcoidosis
     Route: 065
  7. ACETAMINOPHEN [Concomitant]
     Active Substance: ACETAMINOPHEN
  8. DEXCHLORPHENIRAMINE [Concomitant]
     Active Substance: DEXCHLORPHENIRAMINE
  9. METHYLPREDNISOLONE [Concomitant]
     Active Substance: METHYLPREDNISOLONE

REACTIONS (17)
  - Anal abscess [Unknown]
  - Glaucoma [Unknown]
  - Portal vein thrombosis [Unknown]
  - Obesity [Unknown]
  - Cushingoid [Unknown]
  - Osteoporosis [Unknown]
  - Hypertension [Unknown]
  - Type 2 diabetes mellitus [Unknown]
  - Hypercholesterolaemia [Unknown]
  - Psychiatric symptom [Unknown]
  - Osteonecrosis [Unknown]
  - Tendon rupture [Unknown]
  - Central serous chorioretinopathy [Unknown]
  - Ecchymosis [Unknown]
  - Vaccination failure [Unknown]
  - Drug interaction [Unknown]
  - Infection [Unknown]
